FAERS Safety Report 9120780 (Version 1)
Quarter: 2013Q1

REPORT INFORMATION
  Report Type: Report from Study
  Country: CA (occurrence: CA)
  Receive Date: 20130226
  Receipt Date: 20130226
  Transmission Date: 20140127
  Serious: Yes (Other)
  Sender: FDA-Public Use
  Company Number: CA-JNJFOC-20130212595

PATIENT
  Age: 36 Year
  Sex: Female
  Weight: 63.96 kg

DRUGS (4)
  1. REMICADE [Suspect]
     Indication: CROHN^S DISEASE
     Route: 042
  2. CORTISONE [Concomitant]
     Indication: CROHN^S DISEASE
     Route: 065
  3. AZATHIOPRINE [Concomitant]
     Indication: CROHN^S DISEASE
     Route: 065
  4. VITAMIN B12 [Concomitant]
     Indication: CROHN^S DISEASE
     Route: 065

REACTIONS (2)
  - Crohn^s disease [Unknown]
  - Weight decreased [Unknown]
